FAERS Safety Report 8029947-4 (Version None)
Quarter: 2011Q4

REPORT INFORMATION
  Report Type: 
  Country: None (occurrence: None)
  Receive Date: 20111130
  Receipt Date: 20110708
  Transmission Date: 20120403
  Serious: Yes (Hospitalization, Other)
  Sender: FDA-Public Use
  Company Number: US201106001367

PATIENT
  Sex: Male
  Weight: 81.6 kg

DRUGS (6)
  1. WELCHOL [Concomitant]
  2. ZOCOR [Concomitant]
  3. ACE INHIBITORS [Concomitant]
  4. AMARYL [Concomitant]
  5. METFORIN (METFORMIN) [Concomitant]
  6. BYETTA [Suspect]
     Indication: TYPE 2 DIABETES MELLITUS
     Dosage: 10 UG, BID, SUBCUTANEOUS
     Route: 058
     Dates: start: 20070101, end: 20110501

REACTIONS (2)
  - WEIGHT DECREASED [None]
  - PANCREATITIS [None]
